FAERS Safety Report 18564206 (Version 11)
Quarter: 2021Q4

REPORT INFORMATION
  Report Type: Report from Study
  Country: US (occurrence: US)
  Receive Date: 20201201
  Receipt Date: 20211028
  Transmission Date: 20220303
  Serious: Yes (Hospitalization, Other)
  Sender: FDA-Public Use
  Company Number: US-GLAXOSMITHKLINE-US2020AMR128656

PATIENT
  Sex: Female
  Weight: 64.4 kg

DRUGS (13)
  1. NIRAPARIB [Suspect]
     Active Substance: NIRAPARIB
     Indication: Ovarian cancer
     Dosage: 200 MG, QD (NOT OFF LABEL-142LBS)
     Dates: start: 20200629
  2. NIRAPARIB [Suspect]
     Active Substance: NIRAPARIB
     Dosage: 200 MG, QD
  3. NIRAPARIB [Suspect]
     Active Substance: NIRAPARIB
     Dosage: 200 MG, QD
     Route: 048
  4. NIRAPARIB [Suspect]
     Active Substance: NIRAPARIB
     Dosage: 100 MG, QD
     Dates: start: 20201120
  5. NIRAPARIB [Suspect]
     Active Substance: NIRAPARIB
     Dosage: 100 MG, QD
     Route: 048
  6. NIRAPARIB [Suspect]
     Active Substance: NIRAPARIB
     Dosage: 100 MG, QD
  7. NIRAPARIB [Suspect]
     Active Substance: NIRAPARIB
     Dosage: 100 MG, QD
  8. NIRAPARIB [Suspect]
     Active Substance: NIRAPARIB
     Dosage: 100 MG, QD
     Route: 048
  9. NIRAPARIB [Suspect]
     Active Substance: NIRAPARIB
     Dosage: 100 MG, QD
  10. NIRAPARIB [Suspect]
     Active Substance: NIRAPARIB
     Dosage: 100 MG, QD
  11. NIRAPARIB [Suspect]
     Active Substance: NIRAPARIB
     Dosage: 100 MG, QD
  12. VITAMIN D [Concomitant]
     Active Substance: VITAMIN D NOS
     Indication: Product used for unknown indication
     Dosage: UNK
  13. COQ10 LIQUID [Concomitant]
     Indication: Product used for unknown indication
     Dosage: UNK

REACTIONS (23)
  - Thrombosis [Unknown]
  - Pulmonary thrombosis [Unknown]
  - Renal impairment [Recovered/Resolved]
  - Cataract [Unknown]
  - Nervousness [Recovered/Resolved]
  - Tremor [Recovered/Resolved]
  - Blood pressure increased [Recovered/Resolved]
  - Salivary hypersecretion [Recovered/Resolved]
  - Cough [Unknown]
  - Productive cough [Unknown]
  - Contusion [Unknown]
  - Abdominal pain upper [Recovered/Resolved]
  - Postoperative adhesion [Recovering/Resolving]
  - Headache [Recovered/Resolved]
  - Anxiety [Recovered/Resolved]
  - Bursitis [Unknown]
  - Fatigue [Recovering/Resolving]
  - Pain in extremity [Unknown]
  - Arthralgia [Unknown]
  - Muscle strain [Unknown]
  - Blood cholesterol decreased [Not Recovered/Not Resolved]
  - Peripheral swelling [Recovering/Resolving]
  - White blood cell count decreased [Not Recovered/Not Resolved]
